FAERS Safety Report 10009867 (Version 2)
Quarter: 2014Q1

REPORT INFORMATION
  Report Type: Spontaneous
  Country: US (occurrence: US)
  Receive Date: 20140312
  Receipt Date: 20140312
  Transmission Date: 20141002
  Serious: No
  Sender: FDA-Public Use
  Company Number: US-INCYTE CORPORATION-2013IN000180

PATIENT
  Age: 66 Year
  Sex: Female

DRUGS (8)
  1. JAKAFI [Suspect]
     Indication: MYELOFIBROSIS
     Dosage: 20 MG, BID
     Route: 048
     Dates: start: 20111218
  2. FISH OIL [Concomitant]
     Dosage: 340/1000 MG
  3. ALEVE [Concomitant]
     Dosage: 220
  4. MULTIVITAMIN [Concomitant]
  5. HYDREA [Concomitant]
  6. TYLENOL EXTRA STRENGTH [Concomitant]
     Dosage: 500 MG
  7. LISINOPRIL [Concomitant]
     Dosage: 5 MG
  8. CALCIUM 600 + D [Concomitant]

REACTIONS (2)
  - Blood uric acid increased [Recovering/Resolving]
  - Wrong technique in drug usage process [Unknown]
